FAERS Safety Report 19260056 (Version 1)
Quarter: 2021Q2

REPORT INFORMATION
  Report Type: Spontaneous
  Country: US (occurrence: US)
  Receive Date: 20210514
  Receipt Date: 20210514
  Transmission Date: 20210717
  Serious: No
  Sender: FDA-Public Use
  Company Number: US-JAZZ-JPI-P-024499

PATIENT
  Sex: Male

DRUGS (4)
  1. XYREM [Suspect]
     Active Substance: SODIUM OXYBATE
     Dosage: 4.5 GRAM, SECOND DOSE
     Route: 048
  2. XYREM [Suspect]
     Active Substance: SODIUM OXYBATE
     Dosage: 4.5 GRAM, BID
     Route: 048
  3. XYREM [Suspect]
     Active Substance: SODIUM OXYBATE
     Dosage: 3.5 GRAM, FIRST DOSE
     Route: 048
  4. XYREM [Suspect]
     Active Substance: SODIUM OXYBATE
     Indication: NARCOLEPSY
     Route: 048
     Dates: start: 20090702

REACTIONS (2)
  - Sleep-related eating disorder [Recovered/Resolved]
  - Somnambulism [Recovered/Resolved]
